FAERS Safety Report 4914716-1 (Version None)
Quarter: 2006Q1

REPORT INFORMATION
  Report Type: 
  Country: None (occurrence: None)
  Receive Date: 20060216
  Receipt Date: 20050406
  Transmission Date: 20060701
  Serious: Yes (Hospitalization, Other)
  Sender: FDA-Public Use
  Company Number: US-MERCK-0504USA01085

PATIENT
  Age: 59 Year
  Sex: Female
  Weight: 56 kg

DRUGS (14)
  1. VIOXX [Suspect]
     Indication: OSTEOARTHRITIS
     Route: 048
     Dates: start: 20000101, end: 20030101
  2. ACIPHEX [Concomitant]
     Route: 065
  3. TIAZAC [Concomitant]
     Route: 065
  4. PREMARIN [Concomitant]
     Route: 065
  5. HYDROCHLOROTHIAZIDE [Concomitant]
     Route: 065
  6. CARDIZEM CD [Concomitant]
     Route: 065
  7. PROTONIX [Concomitant]
     Route: 065
  8. ASPIRIN [Concomitant]
     Route: 065
  9. FOSAMAX [Concomitant]
     Route: 065
  10. MONOPRIL [Concomitant]
     Route: 065
  11. LYSINE [Concomitant]
     Route: 065
  12. ZOVIRAX [Concomitant]
     Route: 065
  13. ALLEGRA [Concomitant]
     Route: 065
  14. VITAMIN E [Concomitant]
     Route: 065

REACTIONS (9)
  - BRAIN STEM ISCHAEMIA [None]
  - CEREBROVASCULAR ACCIDENT [None]
  - CHEST PAIN [None]
  - DYSPNOEA [None]
  - DYSURIA [None]
  - HYPERTENSION [None]
  - OEDEMA PERIPHERAL [None]
  - SARCOIDOSIS [None]
  - SILENT MYOCARDIAL INFARCTION [None]
